FAERS Safety Report 16215559 (Version 2)
Quarter: 2020Q2

REPORT INFORMATION
  Report Type: Spontaneous
  Country: FR (occurrence: FR)
  Receive Date: 20190419
  Receipt Date: 20200410
  Transmission Date: 20200713
  Serious: Yes (Life-Threatening, Other)
  Sender: FDA-Public Use
  Company Number: FR-AUROBINDO-AUR-APL-2019-020616

PATIENT
  Age: 46 Year
  Sex: Female

DRUGS (2)
  1. PARACETAMOL [Suspect]
     Active Substance: ACETAMINOPHEN
     Indication: MIGRAINE
     Dosage: UNK
     Route: 048
     Dates: start: 20190223, end: 20190223
  2. LYSOPAINE [Suspect]
     Active Substance: CETYLPYRIDINIUM CHLORIDE\LYSOZYME HYDROCHLORIDE
     Indication: PHARYNGITIS
     Dosage: 2 DOSAGE FORM, ONCE A DAY
     Route: 048
     Dates: start: 20190208, end: 20190208

REACTIONS (1)
  - Toxic epidermal necrolysis [Recovered/Resolved with Sequelae]

NARRATIVE: CASE EVENT DATE: 20190310
